FAERS Safety Report 20196020 (Version 4)
Quarter: 2022Q3

REPORT INFORMATION
  Report Type: Spontaneous
  Country: FR (occurrence: FR)
  Receive Date: 20211216
  Receipt Date: 20220927
  Transmission Date: 20221026
  Serious: Yes (Hospitalization, Disabling, Other)
  Sender: FDA-Public Use
  Company Number: FR-BAXTER-2021BAX037836

PATIENT
  Age: 28 Year
  Sex: Female

DRUGS (13)
  1. METHOTREXATE SODIUM [Suspect]
     Active Substance: METHOTREXATE SODIUM
     Indication: Product used for unknown indication
     Dosage: 15 MG, WEEKLY
     Route: 065
     Dates: start: 200810, end: 200905
  2. SOLU-MEDROL [Suspect]
     Active Substance: METHYLPREDNISOLONE SODIUM SUCCINATE
     Indication: Antisynthetase syndrome
     Dosage: 500 MG, 1X/DAY
     Route: 040
     Dates: start: 20131028
  3. SOLU-MEDROL [Suspect]
     Active Substance: METHYLPREDNISOLONE SODIUM SUCCINATE
     Dosage: 500 MG, 1X/DAY
     Route: 040
     Dates: start: 20131029
  4. SOLU-MEDROL [Suspect]
     Active Substance: METHYLPREDNISOLONE SODIUM SUCCINATE
     Dosage: 500 MG, 1X/DAY
     Route: 040
     Dates: start: 20131030
  5. CYCLOPHOSPHAMIDE [Suspect]
     Active Substance: CYCLOPHOSPHAMIDE
     Indication: Antisynthetase syndrome
     Dosage: 700 MG/M3, CYCLIC 1ST CYCLE
     Route: 042
     Dates: start: 20130503
  6. CYCLOPHOSPHAMIDE [Suspect]
     Active Substance: CYCLOPHOSPHAMIDE
     Dosage: 700 MG/M3, CYCLIC 2ND CYCLE
     Route: 042
     Dates: start: 20130605
  7. CYCLOPHOSPHAMIDE [Suspect]
     Active Substance: CYCLOPHOSPHAMIDE
     Dosage: 1 G, MONTHLY, DOSE DECREASED, 3RD CYCLE
     Route: 042
     Dates: start: 20130709
  8. CYCLOPHOSPHAMIDE [Suspect]
     Active Substance: CYCLOPHOSPHAMIDE
     Dosage: 4TH INFUSION
     Route: 042
     Dates: start: 20131030
  9. CYCLOPHOSPHAMIDE [Suspect]
     Active Substance: CYCLOPHOSPHAMIDE
     Dosage: 1 G, 5TH CYCLE
     Route: 042
  10. CYCLOPHOSPHAMIDE [Suspect]
     Active Substance: CYCLOPHOSPHAMIDE
     Dosage: 1 G, 6TH CYCLE
     Route: 042
  11. PREDNISONE [Suspect]
     Active Substance: PREDNISONE
     Indication: Antisynthetase syndrome
     Dosage: 1 DF 1 MG/KG
     Route: 065
     Dates: start: 20131028
  12. PREDNISONE [Suspect]
     Active Substance: PREDNISONE
     Dosage: 1 DF 1 MG/KG
     Route: 065
     Dates: start: 20131029
  13. PREDNISONE [Suspect]
     Active Substance: PREDNISONE
     Dosage: 1 DF 1 MG/KG
     Route: 065
     Dates: start: 20131030

REACTIONS (25)
  - Device breakage [Unknown]
  - Dehydration [Unknown]
  - Abdominal pain upper [Unknown]
  - Vomiting [Unknown]
  - Drug intolerance [Unknown]
  - Respiratory failure [Unknown]
  - Pulmonary fibrosis [Unknown]
  - Gastrointestinal disorder [Unknown]
  - Pulmonary hypertension [Unknown]
  - Chronic respiratory failure [Unknown]
  - Nosocomial infection [Unknown]
  - Dry skin [Unknown]
  - Mucosal inflammation [Unknown]
  - Decreased appetite [Unknown]
  - Aphthous ulcer [Unknown]
  - Dyspnoea [Unknown]
  - Eyelid oedema [Unknown]
  - Pruritus [Unknown]
  - Vision blurred [Unknown]
  - Asthenia [Unknown]
  - Bronchitis viral [Unknown]
  - Condition aggravated [Unknown]
  - Emphysema [Unknown]
  - Blood carbon monoxide decreased [Unknown]
  - Restrictive pulmonary disease [Unknown]

NARRATIVE: CASE EVENT DATE: 20130101
